FAERS Safety Report 7648157-3 (Version None)
Quarter: 2011Q3

REPORT INFORMATION
  Report Type: 
  Country: None (occurrence: None)
  Receive Date: 20110801
  Receipt Date: 20110719
  Transmission Date: 20111222
  Serious: Yes (Other)
  Sender: FDA-Public Use
  Company Number: FR-VERTEX PHARMACEUTICALS INC.-AE-2011-000402

PATIENT
  Sex: Male
  Weight: 84 kg

DRUGS (12)
  1. RIBAVIRIN [Concomitant]
     Indication: HEPATITIS C
     Route: 048
     Dates: start: 20110407
  2. ADANCOR [Concomitant]
     Indication: CARDIAC DISORDER
     Dates: start: 20070101
  3. VERAPAMIL [Concomitant]
     Indication: HYPERTENSION
     Route: 048
     Dates: start: 20070101
  4. ASPIRIN [Concomitant]
     Indication: CARDIAC DISORDER
     Route: 048
     Dates: start: 20070101
  5. PEGINTERFERON ALFA-2A [Concomitant]
     Indication: HEPATITIS C
     Route: 058
  6. VX-950 [Suspect]
     Indication: HEPATITIS C
     Route: 048
     Dates: start: 20110407
  7. VX-950 [Suspect]
     Route: 048
     Dates: end: 20110705
  8. PRAVASTATIN [Concomitant]
     Indication: HYPERTRIGLYCERIDAEMIA
     Route: 048
     Dates: start: 20070101
  9. TRANDOLAPRIL [Concomitant]
     Indication: HYPERTENSION
     Route: 048
     Dates: start: 20070101
  10. ALLOPURINOL [Concomitant]
     Indication: HYPERURICAEMIA
     Dates: start: 20070101
  11. LANZOR [Concomitant]
     Indication: ABDOMINAL PAIN UPPER
     Route: 048
     Dates: start: 20080101
  12. DESLORATADINE [Concomitant]
     Indication: URTICARIA
     Route: 048
     Dates: start: 20090101

REACTIONS (2)
  - IMPETIGO [None]
  - INAPPROPRIATE SCHEDULE OF DRUG ADMINISTRATION [None]
